FAERS Safety Report 19659915 (Version 2)
Quarter: 2021Q3

REPORT INFORMATION
  Report Type: Spontaneous
  Country: JP (occurrence: JP)
  Receive Date: 20210805
  Receipt Date: 20210830
  Transmission Date: 20211014
  Serious: No
  Sender: FDA-Public Use
  Company Number: NVSJ2021JP004322

PATIENT
  Age: 76 Year
  Sex: Female

DRUGS (5)
  1. BEOVU [Suspect]
     Active Substance: BROLUCIZUMAB-DBLL
     Dosage: 6 MG, ADMINISTRATION IN THE RIGHT EYE
     Route: 031
     Dates: start: 20201112, end: 20201112
  2. BEOVU [Suspect]
     Active Substance: BROLUCIZUMAB-DBLL
     Indication: NEOVASCULAR AGE-RELATED MACULAR DEGENERATION
     Dosage: 6 MG, ADMINISTRATION IN THE RIGHT EYE
     Route: 031
     Dates: start: 20200813, end: 20200813
  3. BEOVU [Suspect]
     Active Substance: BROLUCIZUMAB-DBLL
     Dosage: 6 MG, ADMINISTRATION IN THE RIGHT EYE
     Route: 031
     Dates: start: 20200924, end: 20200924
  4. BEOVU [Suspect]
     Active Substance: BROLUCIZUMAB-DBLL
     Dosage: 6 MG, ADMINISTRATION IN THE LEFT EYE
     Route: 031
     Dates: start: 20201015, end: 20201015
  5. BEOVU [Suspect]
     Active Substance: BROLUCIZUMAB-DBLL
     Dosage: 6 MG, ADMINISTRATION IN THE LEFT EYE
     Route: 031
     Dates: start: 20200824, end: 20200824

REACTIONS (2)
  - Retinal perivascular sheathing [Recovering/Resolving]
  - Visual impairment [Recovered/Resolved]

NARRATIVE: CASE EVENT DATE: 20201210
